FAERS Safety Report 9832523 (Version 2)
Quarter: 2014Q1

REPORT INFORMATION
  Report Type: Spontaneous
  Country: FI (occurrence: FI)
  Receive Date: 20140121
  Receipt Date: 20140204
  Transmission Date: 20141002
  Serious: Yes (Hospitalization)
  Sender: FDA-Public Use
  Company Number: PHHY2014FI002915

PATIENT
  Age: 64 Year
  Sex: Female

DRUGS (8)
  1. LEPONEX [Suspect]
     Indication: SCHIZOPHRENIA
     Dosage: 700 MG, DAILY (3 X100 MG + 4 X100 MG)
     Route: 048
  2. LEPONEX [Suspect]
     Dosage: 600 MG, DAILY
     Route: 048
     Dates: end: 20131118
  3. LEVOZIN [Concomitant]
     Indication: SCHIZOPHRENIA
     Dosage: 100 MG, QD (IN THE EVENING)
     Route: 048
     Dates: end: 20131118
  4. TENOX (TEMAZEPAM) [Concomitant]
     Indication: INSOMNIA
     Dosage: 20 MG, QD
     Route: 048
  5. SIMVASTATIN [Concomitant]
     Indication: HYPERCHOLESTEROLAEMIA
     Dosage: 20 MG, QD
     Route: 048
  6. FURESIS [Concomitant]
     Indication: HYPERTENSION
     Dosage: 20 MG, QD
     Route: 048
  7. ABILIFY [Concomitant]
     Indication: PSYCHOTIC DISORDER
     Dosage: UNK UKN, UNK
     Dates: end: 20131118
  8. MIRTAZAPINE [Concomitant]
     Dosage: UNK
     Dates: end: 2013

REACTIONS (12)
  - Pyelonephritis [Recovered/Resolved]
  - Neutropenia [Recovered/Resolved]
  - Leukopenia [Recovered/Resolved]
  - Pyrexia [Recovered/Resolved]
  - Dysphonia [Unknown]
  - Tearfulness [Unknown]
  - Emotional distress [Unknown]
  - Panic disorder [Unknown]
  - Hiatus hernia [Unknown]
  - Mental disorder [Unknown]
  - Mental impairment [Unknown]
  - Drug ineffective [Unknown]
